FAERS Safety Report 4465782-1 (Version None)
Quarter: 2004Q4

REPORT INFORMATION
  Report Type: 
  Country: None (occurrence: None)
  Receive Date: 20041005
  Receipt Date: 20040929
  Transmission Date: 20050328
  Serious: Yes (Other)
  Sender: FDA-Public Use
  Company Number: CA-JNJFOC-20040906460

PATIENT

DRUGS (1)
  1. REMICADE [Suspect]
     Indication: ANKYLOSING SPONDYLITIS
     Route: 042

REACTIONS (4)
  - ANKYLOSING SPONDYLITIS [None]
  - AORTIC VALVE REPLACEMENT [None]
  - CONDITION AGGRAVATED [None]
  - PERICARDIAL EFFUSION [None]
